FAERS Safety Report 19587173 (Version 2)
Quarter: 2021Q3

REPORT INFORMATION
  Report Type: Report from Study
  Country: None (occurrence: BR)
  Receive Date: 20210721
  Receipt Date: 20210818
  Transmission Date: 20211014
  Serious: Yes (Disabling)
  Sender: FDA-Public Use
  Company Number: BR-ABBVIE-21K-020-3994700-00

PATIENT
  Sex: Female
  Weight: 70 kg

DRUGS (1)
  1. RINVOQ [Suspect]
     Active Substance: UPADACITINIB
     Indication: RHEUMATOID ARTHRITIS
     Route: 048

REACTIONS (6)
  - Gait inability [Recovered/Resolved]
  - Bedridden [Recovered/Resolved]
  - Impaired work ability [Not Recovered/Not Resolved]
  - Pain in extremity [Recovered/Resolved]
  - Arthralgia [Recovered/Resolved]
  - Drug ineffective [Not Recovered/Not Resolved]
